FAERS Safety Report 21979351 (Version 2)
Quarter: 2023Q1

REPORT INFORMATION
  Report Type: Report from Study
  Country: CA (occurrence: CA)
  Receive Date: 20230210
  Receipt Date: 20230316
  Transmission Date: 20230417
  Serious: Yes (Other)
  Sender: FDA-Public Use
  Company Number: CA-AMGEN-CANSL2023018347

PATIENT
  Age: 51 Year
  Sex: Male
  Weight: 127 kg

DRUGS (2)
  1. MVASI [Suspect]
     Active Substance: BEVACIZUMAB-AWWB
     Indication: Glioblastoma
     Dosage: 1200 MILLIGRAM, Q4WK
     Route: 065
     Dates: start: 20230118
  2. MVASI [Suspect]
     Active Substance: BEVACIZUMAB-AWWB
     Dosage: 1200 MILLIGRAM, Q4WK
     Route: 065
     Dates: start: 20230207

REACTIONS (2)
  - Anaphylactic reaction [Unknown]
  - Off label use [Unknown]

NARRATIVE: CASE EVENT DATE: 20230101
